FAERS Safety Report 23752897 (Version 1)
Quarter: 2024Q2

REPORT INFORMATION
  Report Type: Report from Study
  Country: US (occurrence: US)
  Receive Date: 20240417
  Receipt Date: 20240417
  Transmission Date: 20240716
  Serious: No
  Sender: FDA-Public Use
  Company Number: US-E2BLSMVVAL-CLI/USA/24/0005448

PATIENT
  Age: 33 Year
  Sex: Female
  Weight: 80.42 kg

DRUGS (2)
  1. SAPROPTERIN DIHYDROCHLORIDE [Suspect]
     Active Substance: SAPROPTERIN DIHYDROCHLORIDE
     Indication: Phenylketonuria
     Dosage: MIX THREE 500MG PACKETS IN 4 TO 8 OUNCES OF WATER OR APPLE JUICE AND TAKE ONCE DAILY WITH FOOD AS DI
     Route: 048
  2. SAPROPTERIN DIHYDROCHLORIDE [Suspect]
     Active Substance: SAPROPTERIN DIHYDROCHLORIDE
     Indication: Phenylketonuria
     Dosage: MIX ONE 100MG PACKET IN 4 TO 8 OUNCES OF WATER OR APPLE JUICE AND TAKE ONCE DAILY WITH FOOD AS DIREC
     Route: 048

REACTIONS (2)
  - Therapy cessation [Unknown]
  - Treatment noncompliance [Unknown]
